FAERS Safety Report 4861360-0 (Version None)
Quarter: 2005Q4

REPORT INFORMATION
  Report Type: 
  Country: None (occurrence: None)
  Receive Date: 20051129
  Receipt Date: 20050222
  Transmission Date: 20060501
  Serious: Yes (Disabling)
  Sender: FDA-Public Use
  Company Number: WAES 0502USA02804

PATIENT
  Age: 50 Year
  Sex: Female

DRUGS (2)
  1. FOSAMAX [Suspect]
     Indication: BONE DENSITY DECREASED
     Dosage: 70 MG WKY PO
     Route: 048
     Dates: start: 20030901
  2. ADVIL [Concomitant]

REACTIONS (3)
  - FLATULENCE [None]
  - NAUSEA [None]
  - STOMACH DISCOMFORT [None]
